FAERS Safety Report 7960176-6 (Version None)
Quarter: 2011Q4

REPORT INFORMATION
  Report Type: 
  Country: None (occurrence: None)
  Receive Date: 20111206
  Receipt Date: 20111201
  Transmission Date: 20120403
  Serious: Yes (Hospitalization, Other)
  Sender: FDA-Public Use
  Company Number: PHHY2011AR105813

PATIENT
  Sex: Female

DRUGS (1)
  1. ZOLEDRONOC ACID [Suspect]
     Indication: BONE PAIN
     Dosage: UNK UKN, UNK
     Route: 042
     Dates: start: 20110101

REACTIONS (3)
  - POSTOPERATIVE WOUND INFECTION [None]
  - DRUG INEFFECTIVE [None]
  - HIP FRACTURE [None]
